FAERS Safety Report 20260012 (Version 1)
Quarter: 2021Q4

REPORT INFORMATION
  Report Type: Spontaneous
  Country: US (occurrence: US)
  Receive Date: 20211230
  Receipt Date: 20211230
  Transmission Date: 20220303
  Serious: No
  Sender: FDA-Public Use
  Company Number: US-COOPERSURGICAL, INC.-US-2020CPS003188

PATIENT
  Sex: Female
  Weight: 82.54 kg

DRUGS (4)
  1. PARAGARD T 380A [Suspect]
     Active Substance: COPPER
     Indication: Contraception
     Dosage: UNK
     Route: 015
     Dates: start: 20201106, end: 20201204
  2. PARAGARD T 380A [Suspect]
     Active Substance: COPPER
     Dosage: UNK
     Route: 015
     Dates: start: 20210126
  3. SPRINTEC [Concomitant]
     Active Substance: ETHINYL ESTRADIOL\NORGESTIMATE
     Indication: Contraception
     Dosage: TAKE 1 TABLET BY ORAL ROUTE ONCE DAILY
     Route: 048
     Dates: start: 20201204
  4. FLAGYL                             /00012501/ [Concomitant]
     Indication: Product used for unknown indication
     Dosage: TAKE 1 TABLET (500 MG) BY ORAL ROUTE EVERY 12 HOURS FOR SEVEN DAYS
     Route: 048
     Dates: start: 20201204

REACTIONS (5)
  - Sensation of foreign body [Recovered/Resolved]
  - Muscle spasms [Recovered/Resolved]
  - Pelvic pain [Not Recovered/Not Resolved]
  - Abnormal uterine bleeding [Unknown]
  - Device expulsion [Recovered/Resolved]

NARRATIVE: CASE EVENT DATE: 20200101
